FAERS Safety Report 16311490 (Version 1)
Quarter: 2019Q2

REPORT INFORMATION
  Report Type: Spontaneous
  Country: DE (occurrence: DE)
  Receive Date: 20190514
  Receipt Date: 20190514
  Transmission Date: 20190711
  Serious: Yes (Other)
  Sender: FDA-Public Use
  Company Number: DE-009507513-1905DEU002714

PATIENT
  Age: 68 Year
  Sex: Female

DRUGS (1)
  1. BCG LIVE [Suspect]
     Active Substance: BACILLUS CALMETTE-GUERIN SUBSTRAIN TICE LIVE ANTIGEN
     Indication: BLADDER CANCER
     Dosage: 6 X OVER 6 WEEKS
     Route: 043
     Dates: start: 20180628, end: 20180801

REACTIONS (10)
  - Pollakiuria [Recovering/Resolving]
  - Dysuria [Recovering/Resolving]
  - Eructation [Unknown]
  - Haematuria [Recovering/Resolving]
  - Cystitis noninfective [Unknown]
  - Abdominal distension [Unknown]
  - Constipation [Unknown]
  - Pulpitis dental [Recovered/Resolved]
  - Toothache [Recovered/Resolved]
  - Abdominal discomfort [Unknown]

NARRATIVE: CASE EVENT DATE: 2018
